FAERS Safety Report 5657482-7 (Version None)
Quarter: 2008Q1

REPORT INFORMATION
  Report Type: 
  Country: None (occurrence: None)
  Receive Date: 20080307
  Receipt Date: 20080307
  Transmission Date: 20080703
  Serious: No
  Sender: FDA-Public Use
  Company Number: None

PATIENT
  Sex: Female
  Weight: 86.1834 kg

DRUGS (1)
  1. LEVAQUIN [Suspect]
     Indication: UPPER RESPIRATORY TRACT INFECTION
     Dates: start: 20071205, end: 20071209

REACTIONS (4)
  - ASTHENIA [None]
  - MYALGIA [None]
  - RHEUMATOID ARTHRITIS [None]
  - TENDONITIS [None]
